FAERS Safety Report 9299940 (Version 1)
Quarter: 2013Q2

REPORT INFORMATION
  Report Type: Spontaneous
  Country: BR (occurrence: BR)
  Receive Date: 20130521
  Receipt Date: 20130521
  Transmission Date: 20140414
  Serious: Yes (Other)
  Sender: FDA-Public Use
  Company Number: BR-SANOFI-AVENTIS-2013SA048512

PATIENT
  Age: 72 Year
  Sex: Female

DRUGS (4)
  1. LANTUS [Suspect]
     Indication: TYPE 1 DIABETES MELLITUS
     Route: 058
     Dates: start: 2012
  2. LANTUS SOLOSTAR [Suspect]
     Indication: TYPE 1 DIABETES MELLITUS
     Route: 058
     Dates: start: 2011, end: 2012
  3. SOLOSTAR [Suspect]
     Indication: DEVICE THERAPY
     Dates: start: 2011, end: 2012
  4. CLIKSTAR [Concomitant]
     Indication: DEVICE THERAPY
     Dates: start: 2012

REACTIONS (5)
  - Vitrectomy [Unknown]
  - Blindness [Unknown]
  - Visual impairment [Unknown]
  - Joint dislocation [Recovering/Resolving]
  - Pain [Recovering/Resolving]
